FAERS Safety Report 13503415 (Version 1)
Quarter: 2017Q2

REPORT INFORMATION
  Report Type: Spontaneous
  Country: FR (occurrence: FR)
  Receive Date: 20170502
  Receipt Date: 20170502
  Transmission Date: 20170830
  Serious: Yes (Hospitalization, Other)
  Sender: FDA-Public Use
  Company Number: FR-PFIZER INC-2017182341

PATIENT
  Age: 56 Year
  Sex: Female

DRUGS (21)
  1. RIVOTRIL [Concomitant]
     Active Substance: CLONAZEPAM
     Dosage: 0.5 DF, 1X/DAY
  2. ALENDRONATE TEVA [Concomitant]
     Active Substance: ALENDRONATE SODIUM
  3. VASELINE /00473501/ [Concomitant]
  4. LETROZOLE. [Concomitant]
     Active Substance: LETROZOLE
     Dosage: 1 DF, 1X/DAY
  5. GLYCEROL [Concomitant]
     Active Substance: GLYCERIN
  6. MICROLAX /03136201/ [Concomitant]
  7. DANTRIUM [Concomitant]
     Active Substance: DANTROLENE SODIUM
     Dosage: 4 DF, 2X/DAY
  8. DOLIPRANE [Concomitant]
     Active Substance: ACETAMINOPHEN
     Dosage: 2 DF, 3X/DAY
  9. TAHOR [Suspect]
     Active Substance: ATORVASTATIN CALCIUM
     Indication: HYPERCHOLESTEROLAEMIA
     Dosage: 1 DF, 1X/DAY
     Route: 048
     Dates: end: 20170318
  10. VENLAFAXINE [Suspect]
     Active Substance: VENLAFAXINE HYDROCHLORIDE
     Indication: PRODUCT USED FOR UNKNOWN INDICATION
     Dosage: 1 DF IN THE MORNING, ALTERNATE DAY
     Route: 048
     Dates: end: 20170318
  11. LANSOPRAZOLE MYLAN [Concomitant]
     Active Substance: LANSOPRAZOLE
     Dosage: 1 DF, 1X/DAY
  12. UVEDOSE [Concomitant]
     Active Substance: CHOLECALCIFEROL
  13. ALPRAZOLAM. [Concomitant]
     Active Substance: ALPRAZOLAM
     Dosage: 0.5 DF, 1X/DAY
  14. DEPAMIDE [Concomitant]
     Active Substance: VALPROMIDE
     Dosage: 1 DF, 2X/DAY
  15. CONTRAMAL [Suspect]
     Active Substance: TRAMADOL HYDROCHLORIDE
     Indication: PAIN
     Dosage: 1 DF, 1X/DAY
     Route: 048
     Dates: end: 20170318
  16. GABAPENTINE ARROW [Suspect]
     Active Substance: GABAPENTIN
     Dosage: 1 DF, 3X/DAY
     Route: 048
  17. BACLOFENE [Concomitant]
     Active Substance: BACLOFEN
     Dosage: 2 DF, 3X/DAY
  18. CONTRAMAL [Suspect]
     Active Substance: TRAMADOL HYDROCHLORIDE
     Indication: PAIN
     Dosage: 10 GTT, EVERY 6 HOURS (AS NEEDED)
     Route: 048
  19. LEVOTHYROX [Suspect]
     Active Substance: LEVOTHYROXINE
     Indication: HYPOTHYROIDISM
     Dosage: 1 UG, 1X/DAY
     Route: 048
  20. CALCIDOSE VITAMINE D [Concomitant]
     Active Substance: CALCIUM\CHOLECALCIFEROL
     Dosage: 1 DF, 2X/DAY
  21. LANSOYL [Concomitant]
     Active Substance: MINERAL OIL
     Dosage: 2 DF, 1X/DAY

REACTIONS (3)
  - Tremor [Recovered/Resolved]
  - Gamma-glutamyltransferase increased [Unknown]
  - Hypoglycaemia [Recovered/Resolved]

NARRATIVE: CASE EVENT DATE: 20170318
